FAERS Safety Report 26176645 (Version 1)
Quarter: 2025Q4

REPORT INFORMATION
  Report Type: Spontaneous
  Country: US (occurrence: US)
  Receive Date: 20251218
  Receipt Date: 20251218
  Transmission Date: 20260117
  Serious: Yes (Other)
  Sender: NOVO NORDISK
  Company Number: US-NOVOPROD-1584728

PATIENT
  Age: 70 Year
  Sex: Female

DRUGS (2)
  1. OZEMPIC [Suspect]
     Active Substance: SEMAGLUTIDE
     Dosage: 2 MG
     Route: 058
     Dates: start: 2024
  2. OZEMPIC [Suspect]
     Active Substance: SEMAGLUTIDE
     Indication: Type 2 diabetes mellitus
     Dosage: 0.25 MG, QW
     Route: 058
     Dates: start: 2023

REACTIONS (7)
  - Cataract operation [Unknown]
  - Cataract operation [Unknown]
  - Fall [Recovered/Resolved]
  - Head injury [Unknown]
  - Vitreous floaters [Not Recovered/Not Resolved]
  - Visual impairment [Not Recovered/Not Resolved]
  - Diplopia [Not Recovered/Not Resolved]

NARRATIVE: CASE EVENT DATE: 20240301
